FAERS Safety Report 17790558 (Version 4)
Quarter: 2021Q2

REPORT INFORMATION
  Report Type: Report from Study
  Country: US (occurrence: US)
  Receive Date: 20200515
  Receipt Date: 20210427
  Transmission Date: 20210716
  Serious: Yes (Hospitalization)
  Sender: FDA-Public Use
  Company Number: NVSC2020US131949

PATIENT
  Age: 66 Year
  Sex: Female

DRUGS (3)
  1. ENTRESTO [Suspect]
     Active Substance: SACUBITRIL\VALSARTAN
     Dosage: 50 MG, BID (24/26 MG)
     Route: 048
     Dates: start: 201908
  2. ENTRESTO [Suspect]
     Active Substance: SACUBITRIL\VALSARTAN
     Indication: CARDIAC FAILURE
     Dosage: 50 MG, BID
     Route: 048
  3. ENTRESTO [Suspect]
     Active Substance: SACUBITRIL\VALSARTAN
     Dosage: 50 MG, QD (24/26 MG)
     Route: 048
     Dates: start: 20200607

REACTIONS (11)
  - Fluid overload [Recovered/Resolved]
  - Ejection fraction decreased [Not Recovered/Not Resolved]
  - Cardiac function test abnormal [Not Recovered/Not Resolved]
  - Product prescribing error [Unknown]
  - Hypokinesia [Not Recovered/Not Resolved]
  - Dyspnoea [Recovered/Resolved]
  - Speech disorder [Not Recovered/Not Resolved]
  - Hypotension [Not Recovered/Not Resolved]
  - Incorrect dose administered [Unknown]
  - Anxiety [Not Recovered/Not Resolved]
  - Memory impairment [Unknown]

NARRATIVE: CASE EVENT DATE: 201909
